FAERS Safety Report 9006226 (Version 1)
Quarter: 2013Q1

REPORT INFORMATION
  Report Type: Spontaneous
  Country: US (occurrence: US)
  Receive Date: 20130110
  Receipt Date: 20130110
  Transmission Date: 20140127
  Serious: Yes (Life-Threatening, Disabling, Other)
  Sender: FDA-Public Use
  Company Number: US-009507513-0907USA03758

PATIENT
  Age: 11 Year
  Sex: Female
  Weight: 52.16 kg

DRUGS (2)
  1. SINGULAIR [Suspect]
     Indication: ASTHMA
     Dosage: 5 MG, QD
     Route: 048
     Dates: start: 20040101, end: 20081110
  2. ADVAIR [Suspect]
     Indication: ASTHMA
     Dosage: 1 DF, BID
     Route: 055
     Dates: start: 20040101, end: 20081110

REACTIONS (3)
  - Homicidal ideation [Unknown]
  - Mental disorder [Unknown]
  - Suicidal ideation [Unknown]
